FAERS Safety Report 15308075 (Version 2)
Quarter: 2018Q3

REPORT INFORMATION
  Report Type: Spontaneous
  Country: FR (occurrence: FR)
  Receive Date: 20180822
  Receipt Date: 20180829
  Transmission Date: 20181010
  Serious: Yes (Hospitalization, Other)
  Sender: FDA-Public Use
  Company Number: FR-TEVA-2018-FR-944760

PATIENT
  Age: 62 Year
  Sex: Female
  Weight: 81 kg

DRUGS (37)
  1. LERCANIDIPINE [Suspect]
     Active Substance: LERCANIDIPINE
     Indication: PRODUCT USED FOR UNKNOWN INDICATION
     Dosage: 1 DOSAGE FORMS DAILY; 1 DF, QD
     Dates: start: 20180527
  2. SPIRONOLACTONE/ALTIZIDE [Suspect]
     Active Substance: ALTHIAZIDE\SPIRONOLACTONE
     Indication: CARDIAC DISORDER
     Dosage: UNK
     Route: 065
     Dates: start: 20130301
  3. ATORVASTATIN MYLAN [Suspect]
     Active Substance: ATORVASTATIN
     Route: 065
     Dates: start: 20150922
  4. RAMIPRIL. [Suspect]
     Active Substance: RAMIPRIL
     Indication: PRODUCT USED FOR UNKNOWN INDICATION
     Dosage: UNK
     Route: 065
     Dates: start: 20121105
  5. APRANAX [Suspect]
     Active Substance: NAPROXEN
     Indication: FATIGUE
     Dosage: /00256201/
     Route: 065
  6. ATORVASTATIN MYLAN [Suspect]
     Active Substance: ATORVASTATIN
     Indication: PRODUCT USED FOR UNKNOWN INDICATION
     Dosage: 1 DOSAGE FORMS DAILY; 1 DF, QD
     Route: 065
     Dates: start: 20160730
  7. IXPRIM [Suspect]
     Active Substance: ACETAMINOPHEN\TRAMADOL HYDROCHLORIDE
     Indication: BACK PAIN
     Dosage: 3 DOSAGE FORMS DAILY; 3 DF, TID
     Route: 065
     Dates: start: 20110816
  8. ANTALNOX [Suspect]
     Active Substance: NAPROXEN SODIUM
     Indication: PRODUCT USED FOR UNKNOWN INDICATION
     Dosage: UNK
     Route: 065
     Dates: start: 20160730
  9. VOGALENE [Concomitant]
     Active Substance: METOPIMAZINE
     Indication: PRODUCT USED FOR UNKNOWN INDICATION
     Dosage: UNK
     Dates: start: 20160331
  10. ADVAGRAF [Concomitant]
     Active Substance: TACROLIMUS
     Indication: IMMUNOSUPPRESSION
     Dosage: 6 MG, AT 08:00
     Route: 048
  11. OMEPRAZOLE. [Concomitant]
     Active Substance: OMEPRAZOLE
     Indication: PRODUCT USED FOR UNKNOWN INDICATION
     Dosage: UNK
     Dates: start: 20160331
  12. CHOLECALCIFEROL [Concomitant]
     Active Substance: CHOLECALCIFEROL
     Indication: PRODUCT USED FOR UNKNOWN INDICATION
  13. APRANAX [Suspect]
     Active Substance: NAPROXEN
     Indication: BACK PAIN
     Route: 065
     Dates: start: 20160730
  14. ALDACTAZINE [Suspect]
     Active Substance: ALTHIAZIDE\SPIRONOLACTONE
     Indication: PRODUCT USED FOR UNKNOWN INDICATION
     Dosage: 1 DOSAGE FORMS DAILY; 1 DF, QD
     Route: 065
     Dates: start: 20180527
  15. PROGRAF [Concomitant]
     Active Substance: TACROLIMUS\TACROLIMUS ANHYDROUS
     Indication: PRODUCT USED FOR UNKNOWN INDICATION
     Dosage: UNK (AT 8)
     Route: 065
  16. JANUVIA [Concomitant]
     Active Substance: SITAGLIPTIN PHOSPHATE
     Indication: CARDIAC DISORDER
     Dosage: 1 DOSAGE FORMS DAILY; 1 DF, QD
     Route: 065
  17. KARDEGIC [Concomitant]
     Active Substance: ASPIRIN DL-LYSINE
     Indication: CARDIAC DISORDER
     Dosage: 1 DOSAGE FORMS DAILY; 1 DF, QD
     Route: 065
  18. FLUVASTATIN MYLAN [Suspect]
     Active Substance: FLUVASTATIN SODIUM
     Indication: PRODUCT USED FOR UNKNOWN INDICATION
     Dosage: 1 DOSAGE FORMS DAILY; 1 DF, QD
     Route: 065
     Dates: start: 20110201, end: 20160517
  19. CELLCEPT [Concomitant]
     Active Substance: MYCOPHENOLATE MOFETIL\MYCOPHENOLATE MOFETIL HYDROCHLORIDE
     Indication: IMMUNOSUPPRESSION
     Dosage: 2 DOSAGE FORMS DAILY; 2 DF, BID (2 TABLETS AT 08:00, 20:00 (IE 1G MORNING AND EVENING)
     Route: 065
  20. ACEBUTOLOL [Suspect]
     Active Substance: ACEBUTOLOL
     Indication: PRODUCT USED FOR UNKNOWN INDICATION
     Dosage: .5 DOSAGE FORMS DAILY; 0.5 DF, BID (HALF TABLET ON MORNING)
     Route: 065
     Dates: start: 20180527
  21. FORTIMEL COMPACT PROTEIN [Concomitant]
     Indication: PROTEIN DEFICIENCY
     Dosage: 125 ML DAILY; 125 ML, QD
     Route: 048
  22. RAMIPRIL. [Suspect]
     Active Substance: RAMIPRIL
     Route: 065
     Dates: start: 20180527
  23. MELOXICAM. [Suspect]
     Active Substance: MELOXICAM
     Indication: PRODUCT USED FOR UNKNOWN INDICATION
     Dosage: UNK
     Route: 065
     Dates: start: 201603
  24. SPIRONOLACTONE/ALTIZIDE [Suspect]
     Active Substance: ALTHIAZIDE\SPIRONOLACTONE
     Indication: HYPERTENSION
     Route: 065
     Dates: start: 20160321
  25. APRANAX [Suspect]
     Active Substance: NAPROXEN
     Indication: NAUSEA
     Route: 065
     Dates: start: 20160322
  26. ATORVASTATIN MYLAN [Suspect]
     Active Substance: ATORVASTATIN
     Indication: PAIN IN EXTREMITY
     Route: 065
     Dates: start: 20160301, end: 20160517
  27. ANTALNOX [Suspect]
     Active Substance: NAPROXEN SODIUM
     Route: 065
     Dates: start: 20160311
  28. ACEBUTOLOL [Suspect]
     Active Substance: ACEBUTOLOL
     Route: 065
     Dates: start: 20121105
  29. SECTRAL [Concomitant]
     Active Substance: ACEBUTOLOL HYDROCHLORIDE
     Indication: CARDIAC DISORDER
     Dosage: .5 DOSAGE FORMS DAILY; 0.5 DF, 1/2 TABLET AT 08:00
     Route: 048
  30. TANGANIL [Suspect]
     Active Substance: ACETYLLEUCINE
     Indication: DIZZINESS
     Dosage: 2 DOSAGE FORMS DAILY; 2 DF, BID
     Route: 065
  31. MEDROL [Concomitant]
     Active Substance: METHYLPREDNISOLONE
     Indication: IMMUNOSUPPRESSION
     Route: 065
  32. OFLOCET                            /00731801/ [Concomitant]
     Active Substance: OFLOXACIN
     Indication: URINARY TRACT INFECTION
     Dosage: UNK (5 DAYS)
     Route: 065
  33. BACTRIM [Concomitant]
     Active Substance: SULFAMETHOXAZOLE\TRIMETHOPRIM
     Indication: INFECTION
     Dosage: 1 DF, MON WED FRI AT 08:00
     Route: 048
  34. NAPROXEN. [Suspect]
     Active Substance: NAPROXEN
     Indication: PRODUCT USED FOR UNKNOWN INDICATION
     Dosage: UNK UNK, UNK
     Route: 065
     Dates: start: 20160311, end: 20160730
  35. SECTRAL [Concomitant]
     Active Substance: ACEBUTOLOL HYDROCHLORIDE
     Indication: HYPERTENSION
  36. RESIKALI [Concomitant]
     Active Substance: CALCIUM POLYSTYRENE SULFONATE
     Indication: GENERAL SYMPTOM
     Dosage: 1 SPOON IN THE MORNING AND IN THE EVENING, BID
     Route: 065
  37. LANSOPRAZOLE. [Concomitant]
     Active Substance: LANSOPRAZOLE
     Indication: GENERAL SYMPTOM
     Dosage: 30 MILLIGRAM DAILY; 30 MG, QD (30 MG AT 20:00)
     Route: 048

REACTIONS (5)
  - Jaundice [Unknown]
  - Gastrointestinal disorder [Unknown]
  - Hepatitis acute [Unknown]
  - Hepatic necrosis [Unknown]
  - Sleep apnoea syndrome [Unknown]

NARRATIVE: CASE EVENT DATE: 20160408
